FAERS Safety Report 8182943 (Version 3)
Quarter: 2013Q3

REPORT INFORMATION
  Report Type: Report from Study
  Country: US (occurrence: US)
  Receive Date: 20111017
  Receipt Date: 20130712
  Transmission Date: 20140515
  Serious: Yes (Hospitalization)
  Sender: FDA-Public Use
  Company Number: US-ACTELION-A-NJ2011-55292

PATIENT
  Age: 67 Year
  Sex: Female

DRUGS (10)
  1. TRACLEER [Suspect]
     Indication: PULMONARY ARTERIAL HYPERTENSION
     Dosage: 125 MG, BID
     Route: 048
     Dates: start: 2003
  2. TRACLEER [Suspect]
     Dosage: 62.5 MG, BID
     Route: 048
     Dates: start: 2003, end: 2003
  3. COUMADIN [Concomitant]
     Dosage: 7.5 MG, QD
  4. TRAZODONE [Concomitant]
     Dosage: 150 MG, BID
  5. LIDODERM [Concomitant]
     Dosage: 700 MG, QD
  6. THEOPHYLLINE [Concomitant]
     Dosage: 200 MG, UNK
  7. JANUVIA [Concomitant]
     Dosage: 100 MG, UNK
  8. ATORVASTATIN [Concomitant]
     Dosage: 20 MG, QD
  9. LASIX [Concomitant]
     Dosage: 40 MG, TID
  10. DIGOXIN [Concomitant]
     Dosage: 12.5 MG, QD

REACTIONS (3)
  - Hernia [Recovered/Resolved]
  - Hernia repair [Unknown]
  - Colostomy [Recovered/Resolved]
